FAERS Safety Report 5244808-1 (Version None)
Quarter: 2007Q1

REPORT INFORMATION
  Report Type: 
  Country: None (occurrence: None)
  Receive Date: 20070216
  Receipt Date: 20070205
  Transmission Date: 20070707
  Serious: Yes (Hospitalization)
  Sender: FDA-Public Use
  Company Number: GXKR2007CH01393

PATIENT
  Age: 66 Year
  Sex: Male

DRUGS (7)
  1. TRAMADOL HCL [Suspect]
     Indication: BACK PAIN
     Dosage: SEE IMAGE
  2. ACETAMINOPHEN [Concomitant]
  3. CLOPIDOGREL [Concomitant]
  4. ACETYLSALICYLIC ACID SRT [Concomitant]
  5. ISOSORBIDE DINITRATE [Concomitant]
  6. METOPROLOL TARTRATE [Concomitant]
  7. SIMVASTATIN [Concomitant]

REACTIONS (9)
  - AMNESTIC DISORDER [None]
  - COGNITIVE DISORDER [None]
  - CONFUSIONAL STATE [None]
  - DELIRIUM [None]
  - FALL [None]
  - INSOMNIA [None]
  - NAUSEA [None]
  - OVERDOSE [None]
  - SOMNOLENCE [None]
